FAERS Safety Report 5766822-X (Version None)
Quarter: 2008Q2

REPORT INFORMATION
  Report Type: 
  Country: None (occurrence: None)
  Receive Date: 20080612
  Receipt Date: 20080531
  Transmission Date: 20081010
  Serious: Yes (Hospitalization)
  Sender: FDA-Public Use
  Company Number: JP-JNJFOC-20080505860

PATIENT
  Sex: Male
  Weight: 59 kg

DRUGS (12)
  1. REMICADE [Suspect]
     Route: 042
  2. REMICADE [Suspect]
     Indication: CROHN'S DISEASE
     Route: 042
  3. RHYTHMY [Concomitant]
     Indication: INSOMNIA
     Route: 048
  4. LOPERAMIDE HCL [Concomitant]
     Indication: CROHN'S DISEASE
     Route: 048
  5. HALCION [Concomitant]
     Indication: CROHN'S DISEASE
     Route: 048
  6. ELENTAL [Concomitant]
     Indication: CROHN'S DISEASE
     Route: 048
  7. POLYCARBOPHIL CALCIUM [Concomitant]
     Indication: CROHN'S DISEASE
     Route: 048
  8. SOLITA-T3 [Concomitant]
     Indication: CROHN'S DISEASE
     Route: 048
  9. CYANOCOBALAMIN [Concomitant]
     Indication: NEUROPATHY PERIPHERAL
     Route: 048
  10. LOXONIN [Concomitant]
     Indication: CROHN'S DISEASE
     Route: 048
  11. PREDONINE [Concomitant]
     Indication: CROHN'S DISEASE
     Route: 048
  12. BERIZYM [Concomitant]
     Indication: CROHN'S DISEASE

REACTIONS (1)
  - NEURILEMMOMA [None]
